FAERS Safety Report 7385157-5 (Version None)
Quarter: 2011Q1

REPORT INFORMATION
  Report Type: 
  Country: None (occurrence: None)
  Receive Date: 20110330
  Receipt Date: 20110301
  Transmission Date: 20110831
  Serious: Yes (Death)
  Sender: FDA-Public Use
  Company Number: GB-TEVA-272457ISR

PATIENT
  Sex: Female

DRUGS (2)
  1. MITOXANTRONE [Concomitant]
     Dates: end: 20061011
  2. COPAXONE [Suspect]
     Route: 058
     Dates: start: 20060331

REACTIONS (1)
  - LUNG NEOPLASM MALIGNANT [None]
